FAERS Safety Report 19791060 (Version 1)
Quarter: 2021Q3

REPORT INFORMATION
  Report Type: Spontaneous
  Country: US (occurrence: US)
  Receive Date: 20210906
  Receipt Date: 20210906
  Transmission Date: 20211014
  Serious: No
  Sender: FDA-Public Use
  Company Number: US-TEVA-2021-US-1941858

PATIENT
  Sex: Female
  Weight: 47.62 kg

DRUGS (19)
  1. LENVIMA 20MG [Concomitant]
     Indication: ENDOMETRIAL CANCER
     Dosage: 20 MILLIGRAM DAILY;
     Route: 048
  2. PANTOPRAZOLE SODIUM. [Concomitant]
     Active Substance: PANTOPRAZOLE SODIUM
     Route: 065
  3. TRAMADOL HYDROCHOLRIDE [Suspect]
     Active Substance: TRAMADOL HYDROCHLORIDE
     Route: 065
  4. BIOTIN [Concomitant]
     Active Substance: BIOTIN
     Route: 065
  5. AMLODIPINE BESYLATE. [Concomitant]
     Active Substance: AMLODIPINE BESYLATE
     Route: 065
  6. KEYTRUDA [Concomitant]
     Active Substance: PEMBROLIZUMAB
     Route: 065
  7. ICLUSIG [Concomitant]
     Active Substance: PONATINIB
  8. SODIUM BICARBONATE. [Concomitant]
     Active Substance: SODIUM BICARBONATE
     Route: 065
  9. VITAMIN D3 [Concomitant]
     Active Substance: CHOLECALCIFEROL
     Route: 065
  10. TUMS [Concomitant]
     Active Substance: CALCIUM CARBONATE
     Route: 065
  11. ASPIRIN EC [Concomitant]
     Active Substance: ASPIRIN
     Route: 065
  12. LENVIMA 20MG [Concomitant]
     Indication: PHILADELPHIA POSITIVE CHRONIC MYELOID LEUKAEMIA
  13. ZOFRAN [Concomitant]
     Active Substance: ONDANSETRON HYDROCHLORIDE
     Route: 065
  14. IBUPROFEN. [Concomitant]
     Active Substance: IBUPROFEN
     Route: 065
  15. TELMISARTAN. [Concomitant]
     Active Substance: TELMISARTAN
     Route: 065
  16. LEVOTHYROXINE. [Concomitant]
     Active Substance: LEVOTHYROXINE
     Route: 065
  17. ACETAMINOPHEN. [Concomitant]
     Active Substance: ACETAMINOPHEN
     Route: 065
  18. MIRALAX [Concomitant]
     Active Substance: POLYETHYLENE GLYCOL 3350
     Route: 065
  19. VITAMIN B12 [Concomitant]
     Active Substance: CYANOCOBALAMIN
     Route: 065

REACTIONS (5)
  - Therapeutic product effect variable [Unknown]
  - Sleep disorder [Unknown]
  - Nausea [Unknown]
  - Gastrointestinal disorder [Unknown]
  - Arthralgia [Unknown]
